FAERS Safety Report 16223943 (Version 1)
Quarter: 2019Q2

REPORT INFORMATION
  Report Type: Spontaneous
  Country: US (occurrence: US)
  Receive Date: 20190422
  Receipt Date: 20190422
  Transmission Date: 20190711
  Serious: No
  Sender: FDA-Public Use
  Company Number: US-TEVA-2019-US-1034473

PATIENT
  Age: 62 Year
  Sex: Male

DRUGS (1)
  1. COPAXONE [Suspect]
     Active Substance: GLATIRAMER ACETATE
     Dosage: FORM STRENGTH: UNKNOWN, COPAXONE UNSPECIFIED DOSAGE
     Route: 065

REACTIONS (7)
  - Injection site swelling [Unknown]
  - Headache [Unknown]
  - Injection site pain [Unknown]
  - Influenza like illness [Recovered/Resolved]
  - Injection site erythema [Unknown]
  - Malaise [Unknown]
  - Fatigue [Recovered/Resolved]
